FAERS Safety Report 23410871 (Version 1)
Quarter: 2024Q1

REPORT INFORMATION
  Report Type: Spontaneous
  Country: CN (occurrence: None)
  Receive Date: 20240117
  Receipt Date: 20240117
  Transmission Date: 20240410
  Serious: Yes (Other)
  Sender: FDA-Public Use
  Company Number: 2024A010613

PATIENT
  Age: 17911 Day
  Sex: Female
  Weight: 67 kg

DRUGS (4)
  1. DAPAGLIFLOZIN [Suspect]
     Active Substance: DAPAGLIFLOZIN
     Indication: Type 2 diabetes mellitus
     Route: 048
     Dates: start: 20231211
  2. BETAHISTINE MESILATE [Suspect]
     Active Substance: BETAHISTINE MESILATE
     Indication: Dizziness
     Route: 048
     Dates: start: 20231211
  3. GLUCOPHAGE [Suspect]
     Active Substance: METFORMIN HYDROCHLORIDE
     Indication: Type 2 diabetes mellitus
     Route: 048
     Dates: start: 20231211
  4. GLUCOBAY [Suspect]
     Active Substance: ACARBOSE
     Indication: Type 2 diabetes mellitus
     Route: 048
     Dates: start: 20231211

REACTIONS (2)
  - Drug eruption [Recovering/Resolving]
  - Dizziness [Recovering/Resolving]

NARRATIVE: CASE EVENT DATE: 20231212
